FAERS Safety Report 5722967-1 (Version None)
Quarter: 2008Q2

REPORT INFORMATION
  Report Type: 
  Country: None (occurrence: None)
  Receive Date: 20080428
  Receipt Date: 20080428
  Transmission Date: 20081010
  Serious: No
  Sender: FDA-Public Use
  Company Number: None

PATIENT
  Sex: Female

DRUGS (1)
  1. FENTANYL [Suspect]
     Indication: PAIN
     Dosage: 1 PATCH EVERY 48 HOURS TRANSDERMAL
     Route: 062
     Dates: start: 20080401, end: 20080425

REACTIONS (1)
  - PHARMACEUTICAL PRODUCT COMPLAINT [None]
